FAERS Safety Report 8787205 (Version 1)
Quarter: 2012Q4

REPORT INFORMATION
  Report Type: 
  Country: DE (occurrence: DE)
  Receive Date: 20120914
  Receipt Date: 20120914
  Transmission Date: 20130627
  Serious: Yes (Hospitalization)
  Sender: FDA-Public Use
  Company Number: DE-ELI_LILLY_AND_COMPANY-DE201209000720

PATIENT
  Sex: Female

DRUGS (4)
  1. FORSTEO [Suspect]
     Dosage: UNK
     Route: 058
     Dates: start: 20110407
  2. CALCIUM [Concomitant]
  3. VITAMIN D NOS [Concomitant]
  4. FENTANYL [Concomitant]
     Route: 023

REACTIONS (1)
  - Surgery [Unknown]
